FAERS Safety Report 5772416-2 (Version None)
Quarter: 2008Q2

REPORT INFORMATION
  Report Type: 
  Country: None (occurrence: None)
  Receive Date: 20080613
  Receipt Date: 20080603
  Transmission Date: 20081010
  Serious: Yes (Hospitalization)
  Sender: FDA-Public Use
  Company Number: US-ELI_LILLY_AND_COMPANY-US200803003272

PATIENT
  Age: 80 Year
  Sex: Female

DRUGS (7)
  1. HUMALOG [Suspect]
     Dosage: 100 U, DAILY (1/D)
     Route: 058
  2. COZAAR [Concomitant]
     Dosage: 100 MG, DAILY (1/D)
  3. VERAPAMIL [Concomitant]
     Dosage: 240 MG, DAILY (1/D)
  4. SYNTHROID [Concomitant]
     Dosage: 112 UG, DAILY (1/D)
  5. PRAVACHOL [Concomitant]
     Dosage: 40 MG, DAILY (1/D)
  6. ZYRTEC [Concomitant]
     Dosage: 10 MG, DAILY (1/D)
  7. ASPIRIN [Concomitant]
     Dosage: 81 MG, DAILY (1/D)

REACTIONS (25)
  - ADVERSE DRUG REACTION [None]
  - ARRHYTHMIA [None]
  - BLOOD CALCIUM DECREASED [None]
  - BLOOD CREATININE INCREASED [None]
  - BLOOD GLUCOSE INCREASED [None]
  - BLOOD POTASSIUM INCREASED [None]
  - BRADYCARDIA [None]
  - CHEST PAIN [None]
  - DEVICE FAILURE [None]
  - DIABETES MELLITUS INADEQUATE CONTROL [None]
  - DIABETIC KETOACIDOSIS [None]
  - DIZZINESS [None]
  - EXTRASYSTOLES [None]
  - GOITRE [None]
  - HAEMATOCRIT DECREASED [None]
  - HAEMOGLOBIN DECREASED [None]
  - HEADACHE [None]
  - HYPERLIPIDAEMIA [None]
  - HYPERTENSION [None]
  - HYPOTHYROIDISM [None]
  - NAUSEA [None]
  - PRESYNCOPE [None]
  - SYNCOPE VASOVAGAL [None]
  - TOOTH FRACTURE [None]
  - WHITE BLOOD CELL COUNT DECREASED [None]
